FAERS Safety Report 8961202 (Version 1)
Quarter: 2012Q4

REPORT INFORMATION
  Report Type: 
  Country: CN (occurrence: CN)
  Receive Date: 20121212
  Receipt Date: 20121212
  Transmission Date: 20130627
  Serious: Yes (Other)
  Sender: FDA-Public Use
  Company Number: CN-VIIV HEALTHCARE LIMITED-B0851496A

PATIENT
  Age: 78 Year
  Sex: Female
  Weight: 65 kg

DRUGS (3)
  1. LAMIVUDINE-HIV [Suspect]
     Indication: HIV INFECTION
     Dosage: 300MG Twice per day
     Route: 048
     Dates: start: 20110705, end: 20110718
  2. STAVUDINE [Concomitant]
     Route: 065
     Dates: start: 20110705
  3. NEVIRAPINE [Concomitant]
     Route: 065
     Dates: start: 20110705

REACTIONS (3)
  - Convulsions local [Recovered/Resolved]
  - Neuropathy peripheral [Recovered/Resolved]
  - Overdose [Recovered/Resolved]
